FAERS Safety Report 8573411 (Version 2)
Quarter: 2013Q1

REPORT INFORMATION
  Report Type: Report from Study
  Country: DE (occurrence: DE)
  Receive Date: 20120522
  Receipt Date: 20130318
  Transmission Date: 20140127
  Serious: Yes (Other)
  Sender: FDA-Public Use
  Company Number: DE-FRI-1000030484

PATIENT
  Age: 80 Year
  Sex: Male
  Weight: 75 kg

DRUGS (8)
  1. MEMANTINE [Suspect]
     Indication: DEMENTIA ALZHEIMER^S TYPE
     Dosage: 5 MG
     Route: 048
     Dates: start: 20120406, end: 20120411
  2. BELOC ZOK [Concomitant]
     Indication: HYPERTENSION
     Dosage: 95 MG
  3. BELOC ZOK [Concomitant]
     Indication: ATRIAL FIBRILLATION
  4. RAMIPRIL [Concomitant]
     Indication: HYPERTENSION
     Dosage: 10 MG
  5. HCT [Concomitant]
     Indication: HYPERTENSION
     Dosage: 25 MG
  6. AMLODIPIN [Concomitant]
     Indication: HYPERTENSION
     Dosage: 10 MG
  7. FALITHROM [Concomitant]
     Indication: CORONARY ARTERY BYPASS
     Dosage: DEPENDING ON COAGULATION VALUES
     Dates: start: 20011120
  8. INSUMAN COMB [Concomitant]
     Indication: DIABETES MELLITUS
     Dosage: DEPENDING ON BLOOD SUGAR LEVELS

REACTIONS (3)
  - Cardiac disorder [Recovered/Resolved]
  - Asthenia [Recovered/Resolved]
  - Angina pectoris [None]
